FAERS Safety Report 6043334-X (Version None)
Quarter: 2009Q1

REPORT INFORMATION
  Report Type: 
  Country: None (occurrence: None)
  Receive Date: 20090115
  Receipt Date: 20090112
  Transmission Date: 20090719
  Serious: Yes (Other)
  Sender: FDA-Public Use
  Company Number: S08-USA-01768-01

PATIENT
  Age: 30 Year
  Sex: Female

DRUGS (5)
  1. LEXAPRO [Suspect]
     Indication: ANXIETY
     Dosage: 1 IN 1 D, ORAL; 20 MG (20 MG, 1 IN 1 D), ORAL ; 10 MG, (10 MG, 1 IN 1 D), ORAL
     Route: 048
     Dates: end: 20080508
  2. LEXAPRO [Suspect]
     Indication: ANXIETY
     Dosage: 1 IN 1 D, ORAL; 20 MG (20 MG, 1 IN 1 D), ORAL ; 10 MG, (10 MG, 1 IN 1 D), ORAL
     Route: 048
     Dates: start: 20080516, end: 20080801
  3. LEXAPRO [Suspect]
     Indication: ANXIETY
     Dosage: 1 IN 1 D, ORAL; 20 MG (20 MG, 1 IN 1 D), ORAL ; 10 MG, (10 MG, 1 IN 1 D), ORAL
     Route: 048
     Dates: start: 20030101
  4. LEXAPRO [Suspect]
     Indication: ANXIETY
     Dosage: 1 IN 1 D, ORAL; 20 MG (20 MG, 1 IN 1 D), ORAL ; 10 MG, (10 MG, 1 IN 1 D), ORAL
     Route: 048
     Dates: start: 20080801
  5. XANAX (ALPRAZOLAM) (ALPRAZOLAM) [Concomitant]

REACTIONS (7)
  - DEPRESSION [None]
  - DRUG EXPOSURE DURING PREGNANCY [None]
  - MOOD SWINGS [None]
  - PARAESTHESIA [None]
  - PARANOIA [None]
  - POSTPARTUM HAEMORRHAGE [None]
  - PREGNANCY [None]
